FAERS Safety Report 16961761 (Version 1)
Quarter: 2019Q4

REPORT INFORMATION
  Report Type: Spontaneous
  Country: CN (occurrence: CN)
  Receive Date: 20191025
  Receipt Date: 20191025
  Transmission Date: 20200122
  Serious: Yes (Hospitalization, Other)
  Sender: FDA-Public Use
  Company Number: CN-ASTRAZENECA-2019SF49629

PATIENT
  Age: 9131 Day
  Sex: Female
  Weight: 52 kg

DRUGS (2)
  1. BUDESONIDE SUSPENSION [Suspect]
     Active Substance: BUDESONIDE
     Indication: PERITONSILLAR ABSCESS
     Route: 055
     Dates: start: 20191003, end: 20191003
  2. SALINE [Concomitant]
     Active Substance: SODIUM CHLORIDE
     Dosage: SALINE 3ML, BUDESONIDE 1MG, ATOMIZATION INHALATION, TWICE A DAY

REACTIONS (2)
  - Hypoaesthesia oral [Recovering/Resolving]
  - Hypoaesthesia [Recovering/Resolving]

NARRATIVE: CASE EVENT DATE: 20191003
